FAERS Safety Report 14337456 (Version 1)
Quarter: 2017Q4

REPORT INFORMATION
  Report Type: Spontaneous
  Country: FR (occurrence: FR)
  Receive Date: 20171229
  Receipt Date: 20171229
  Transmission Date: 20180321
  Serious: Yes (Hospitalization)
  Sender: FDA-Public Use
  Company Number: FR-SUN PHARMACEUTICAL INDUSTRIES LTD-2017RR-158107

PATIENT
  Age: 62 Year
  Sex: Male

DRUGS (1)
  1. BACLOFEN. [Suspect]
     Active Substance: BACLOFEN
     Indication: PRODUCT USED FOR UNKNOWN INDICATION
     Route: 048
     Dates: start: 2015

REACTIONS (12)
  - Tremor [Recovered/Resolved]
  - Tachycardia [Recovered/Resolved]
  - Sleep disorder [Recovered/Resolved]
  - Dyspnoea [Recovered/Resolved]
  - Withdrawal syndrome [Recovered/Resolved]
  - Hyperthermia [Recovered/Resolved]
  - Acute kidney injury [Recovered/Resolved]
  - Logorrhoea [Recovered/Resolved]
  - Agitation [Recovered/Resolved]
  - Metabolic acidosis [Recovered/Resolved]
  - Delusion [Recovered/Resolved]
  - Hepatocellular injury [Recovered/Resolved]

NARRATIVE: CASE EVENT DATE: 20170916
